FAERS Safety Report 6596246-7 (Version None)
Quarter: 2010Q1

REPORT INFORMATION
  Report Type: 
  Country: None (occurrence: None)
  Receive Date: 20100219
  Receipt Date: 20100219
  Transmission Date: 20100710
  Serious: No
  Sender: FDA-Public Use
  Company Number: None

PATIENT
  Age: 62 Year
  Sex: Male

DRUGS (2)
  1. PIPERACILLIN AND TAZOBACTAM [Suspect]
     Indication: INFECTION
     Dosage: 3.375 GM TID IV
     Route: 042
     Dates: start: 20090228, end: 20090319
  2. VANCOMYCIN [Suspect]
     Dosage: 1000 MG EVERY DAY IV
     Route: 042
     Dates: start: 20090312, end: 20090319

REACTIONS (2)
  - ABDOMINAL PAIN [None]
  - DIARRHOEA [None]
